FAERS Safety Report 5697413-7 (Version None)
Quarter: 2008Q2

REPORT INFORMATION
  Report Type: 
  Country: None (occurrence: None)
  Receive Date: 20080407
  Receipt Date: 20080328
  Transmission Date: 20081010
  Serious: Yes (Other)
  Sender: FDA-Public Use
  Company Number: PHRM2008FR01151

PATIENT
  Age: 63 Year
  Sex: Male

DRUGS (1)
  1. NEORAL [Suspect]
     Indication: NEPHRITIS AUTOIMMUNE
     Dosage: 250 MG DAILY
     Route: 048
     Dates: start: 19950101, end: 20061001

REACTIONS (1)
  - OPTIC NEUROPATHY [None]
